FAERS Safety Report 8416596-9 (Version None)
Quarter: 2012Q2

REPORT INFORMATION
  Report Type: 
  Country: None (occurrence: None)
  Receive Date: 20120606
  Receipt Date: 20120530
  Transmission Date: 20120825
  Serious: Yes (Other)
  Sender: FDA-Public Use
  Company Number: US-JNJFOC-20120412043

PATIENT
  Sex: Male
  Weight: 63.5 kg

DRUGS (6)
  1. LISINOPRIL [Concomitant]
     Indication: HYPERTENSION
     Route: 065
  2. KLONOPIN [Concomitant]
     Indication: PANIC ATTACK
     Dosage: 3 TIMES A DAY IF NEEDED
     Route: 048
  3. NUCYNTA [Suspect]
     Indication: BACK PAIN
     Dosage: 1 OR 2 TABLETSEVERY 8 HOURS AS NEEDED, MAXIUM 6 TABLETS A DAY
     Route: 048
     Dates: start: 20090101
  4. KLONOPIN [Concomitant]
     Indication: ANXIETY
     Dosage: 3 TIMES A DAY IF NEEDED
     Route: 048
  5. ZETIA [Concomitant]
     Indication: BLOOD CHOLESTEROL INCREASED
     Route: 048
  6. VITAMIN D [Concomitant]
     Indication: VITAMIN D DEFICIENCY
     Route: 065

REACTIONS (2)
  - PANIC ATTACK [None]
  - AGITATION [None]
